FAERS Safety Report 9980880 (Version 1)
Quarter: 2014Q1

REPORT INFORMATION
  Report Type: Spontaneous
  Country: US (occurrence: US)
  Receive Date: 20140307
  Receipt Date: 20140307
  Transmission Date: 20141002
  Serious: No
  Sender: FDA-Public Use
  Company Number: US-GLAXOSMITHKLINE-A1013906A

PATIENT
  Age: 12 Year
  Sex: Male
  Weight: 39.5 kg

DRUGS (6)
  1. ROPINIROLE [Suspect]
     Dosage: .5MG UNKNOWN
     Route: 048
  2. RISPERIDONE [Suspect]
     Indication: PRODUCT USED FOR UNKNOWN INDICATION
     Dosage: .5MG UNKNOWN
     Route: 065
  3. ADDERALL XR [Concomitant]
     Dosage: 30MG IN THE MORNING
  4. ADDERALL [Concomitant]
     Dosage: 10MG PER DAY
  5. MELATONIN [Concomitant]
     Dosage: 5MG AT NIGHT
  6. COLACE [Concomitant]

REACTIONS (3)
  - Abnormal behaviour [Recovered/Resolved]
  - Drug dispensing error [Unknown]
  - Drug administration error [Unknown]
